FAERS Safety Report 8590622-9 (Version None)
Quarter: 2012Q3

REPORT INFORMATION
  Report Type: 
  Country: None (occurrence: None)
  Receive Date: 20120813
  Receipt Date: 20120803
  Transmission Date: 20120928
  Serious: Yes (Other)
  Sender: FDA-Public Use
  Company Number: US-ASTRAZENECA-2012SE30572

PATIENT
  Age: 47 Year
  Sex: Male

DRUGS (2)
  1. PLAVIX [Concomitant]
  2. CRESTOR [Suspect]
     Route: 048

REACTIONS (6)
  - MALAISE [None]
  - ARTERIAL STENOSIS [None]
  - FEELING ABNORMAL [None]
  - CARDIAC DISORDER [None]
  - FATIGUE [None]
  - CARDIAC FAILURE [None]
